FAERS Safety Report 24138180 (Version 1)
Quarter: 2024Q3

REPORT INFORMATION
  Report Type: Spontaneous
  Country: US (occurrence: None)
  Receive Date: 20240725
  Receipt Date: 20240725
  Transmission Date: 20241017
  Serious: No
  Sender: Public
  Company Number: None

PATIENT
  Age: 75 Year
  Sex: Female
  Weight: 81.65 kg

DRUGS (1)
  1. PAXLOVID [Suspect]
     Active Substance: NIRMATRELVIR\RITONAVIR
     Route: 048
     Dates: start: 20240610, end: 20240612

REACTIONS (6)
  - Erythema [None]
  - Erythema [None]
  - Pruritus [None]
  - Rash [None]
  - Secretion discharge [None]
  - Therapy cessation [None]

NARRATIVE: CASE EVENT DATE: 20240610
